FAERS Safety Report 6157929-6 (Version None)
Quarter: 2009Q2

REPORT INFORMATION
  Report Type: 
  Country: None (occurrence: None)
  Receive Date: 20090417
  Receipt Date: 20090408
  Transmission Date: 20091009
  Serious: Yes (Other)
  Sender: FDA-Public Use
  Company Number: BR-JNJFOC-20090403035

PATIENT
  Age: 16 Year
  Sex: Male
  Weight: 70 kg

DRUGS (8)
  1. HALDOL [Suspect]
     Indication: ABNORMAL BEHAVIOUR
     Dosage: SINCE 1 MONTH
     Route: 065
  2. HALDOL [Suspect]
     Indication: OBSESSIVE-COMPULSIVE DISORDER
     Dosage: 4 OR 5 MONTHS
     Route: 065
  3. FENERGAN [Concomitant]
     Indication: ABNORMAL BEHAVIOUR
     Route: 065
  4. FENERGAN [Concomitant]
     Indication: OBSESSIVE-COMPULSIVE DISORDER
     Dosage: TOTAL DAILY DOSE WAS 25 MG PER DAY SINCE ONE MONTH
     Route: 065
  5. TRYPTANOL [Concomitant]
     Indication: ABNORMAL BEHAVIOUR
     Route: 065
  6. TRYPTANOL [Concomitant]
     Indication: OBSESSIVE-COMPULSIVE DISORDER
     Dosage: TOTAL DAILY DOSE WAS 25 MG PER DAY SINCE ONE MONTH
     Route: 065
  7. AMPLICTIL [Concomitant]
     Indication: ABNORMAL BEHAVIOUR
     Route: 065
  8. AMPLICTIL [Concomitant]
     Indication: OBSESSIVE-COMPULSIVE DISORDER
     Route: 065

REACTIONS (4)
  - AGITATION [None]
  - MOVEMENT DISORDER [None]
  - THERAPEUTIC PRODUCT INEFFECTIVE [None]
  - TREMOR [None]
